FAERS Safety Report 15117298 (Version 1)
Quarter: 2018Q3

REPORT INFORMATION
  Report Type: Spontaneous
  Country: FR (occurrence: FR)
  Receive Date: 20180706
  Receipt Date: 20180706
  Transmission Date: 20181010
  Serious: Yes (Other)
  Sender: FDA-Public Use
  Company Number: FR-MYLANLABS-2018M1047933

PATIENT
  Age: 12 Year
  Sex: Male

DRUGS (3)
  1. HYDROQUINIDINE HYDROCHLORIDE [Suspect]
     Active Substance: HYDROQUINIDINE HYDROCHLORIDE
     Indication: VENTRICULAR ARRHYTHMIA
     Dosage: 300 MG THRICE DAILY
     Route: 048
  2. THEOPHYLLINE [Suspect]
     Active Substance: THEOPHYLLINE ANHYDROUS
     Indication: VENTRICULAR ARRHYTHMIA
     Dosage: 500 MG
     Route: 065
  3. DISOPYRAMIDE [Concomitant]
     Active Substance: DISOPYRAMIDE
     Indication: VENTRICULAR ARRHYTHMIA
     Route: 065

REACTIONS (1)
  - Atrial fibrillation [Unknown]
